FAERS Safety Report 15068082 (Version 1)
Quarter: 2018Q2

REPORT INFORMATION
  Report Type: Spontaneous
  Country: US (occurrence: US)
  Receive Date: 20180626
  Receipt Date: 20180626
  Transmission Date: 20180711
  Serious: Yes (Other)
  Sender: FDA-Public Use
  Company Number: US-MYLANLABS-2018M1044953

PATIENT
  Age: 78 Year
  Sex: Male

DRUGS (13)
  1. INTERFERON [Concomitant]
     Active Substance: INTERFERON
     Indication: TRANSITIONAL CELL CARCINOMA
     Route: 043
  2. PYRIDOXINE [Concomitant]
     Active Substance: PYRIDOXINE
     Indication: BALANOPOSTHITIS
     Route: 065
  3. ISONIAZID. [Suspect]
     Active Substance: ISONIAZID
     Indication: GRANULOMA
  4. PYRIDOXINE [Concomitant]
     Active Substance: PYRIDOXINE
     Indication: GRANULOMA
  5. ETHAMBUTOL [Suspect]
     Active Substance: ETHAMBUTOL HYDROCHLORIDE
     Indication: BALANOPOSTHITIS
     Route: 065
  6. RIFAMPICIN [Suspect]
     Active Substance: RIFAMPIN
     Indication: GRANULOMA
  7. PYRIDOXINE [Concomitant]
     Active Substance: PYRIDOXINE
     Indication: GRANULOMATOUS LYMPHADENITIS
  8. RIFAMPICIN [Suspect]
     Active Substance: RIFAMPIN
     Indication: BALANOPOSTHITIS
     Route: 065
  9. RIFAMPICIN [Suspect]
     Active Substance: RIFAMPIN
     Indication: GRANULOMATOUS LYMPHADENITIS
  10. ETHAMBUTOL [Suspect]
     Active Substance: ETHAMBUTOL HYDROCHLORIDE
     Indication: GRANULOMATOUS LYMPHADENITIS
  11. ETHAMBUTOL [Suspect]
     Active Substance: ETHAMBUTOL HYDROCHLORIDE
     Indication: GRANULOMA
  12. ISONIAZID. [Suspect]
     Active Substance: ISONIAZID
     Indication: BALANOPOSTHITIS
     Dosage: RECEIVED FOR ONE MONTH AS A MONO-THERAPY AND THEN FIVE MONTHS WITH ETHAMBUTOL, RIFAMPICIN AND PYR...
     Route: 065
  13. ISONIAZID. [Suspect]
     Active Substance: ISONIAZID
     Indication: GRANULOMATOUS LYMPHADENITIS

REACTIONS (1)
  - Neuropathy peripheral [Unknown]
